FAERS Safety Report 24032032 (Version 1)
Quarter: 2024Q2

REPORT INFORMATION
  Report Type: Spontaneous
  Country: US (occurrence: US)
  Receive Date: 20240630
  Receipt Date: 20240630
  Transmission Date: 20240715
  Serious: Yes (Other)
  Sender: FDA-Public Use
  Company Number: US-MLMSERVICE-20240513-PI062495-00094-1

PATIENT
  Age: 61 Year
  Sex: Male

DRUGS (2)
  1. CHLORHEXIDINE GLUCONATE [Suspect]
     Active Substance: CHLORHEXIDINE GLUCONATE
     Indication: Infection prophylaxis
     Dosage: ANTISEPTIC SOLUTION USED COPIOUSLY THROUGHOUT
  2. CHLORHEXIDINE GLUCONATE [Suspect]
     Active Substance: CHLORHEXIDINE GLUCONATE
     Indication: Infection prophylaxis
     Dosage: 10CC WAS INJECTED UNDER PRESSURE INTO THE DRAIN ; IN TOTAL

REACTIONS (1)
  - Penile necrosis [Recovering/Resolving]
